FAERS Safety Report 6145088-5 (Version None)
Quarter: 2009Q2

REPORT INFORMATION
  Report Type: 
  Country: None (occurrence: None)
  Receive Date: 20090406
  Receipt Date: 20081219
  Transmission Date: 20091009
  Serious: No
  Sender: FDA-Public Use
  Company Number: A0761070A

PATIENT
  Age: 10 Year
  Sex: Male

DRUGS (4)
  1. ADVAIR HFA [Suspect]
     Indication: ASTHMA
     Dosage: 2PUFF TWICE PER DAY
     Route: 055
  2. FLUTICASONE PROPIONATE [Suspect]
     Indication: DRUG USE FOR UNKNOWN INDICATION
     Route: 045
  3. FLUTICASONE PROPIONATE [Concomitant]
  4. CONCERTA [Concomitant]

REACTIONS (2)
  - BLOOD CORTISOL DECREASED [None]
  - GROWTH RETARDATION [None]
